FAERS Safety Report 5664189-9 (Version None)
Quarter: 2008Q1

REPORT INFORMATION
  Report Type: 
  Country: None (occurrence: None)
  Receive Date: 20080312
  Receipt Date: 20080228
  Transmission Date: 20080703
  Serious: Yes (Other)
  Sender: FDA-Public Use
  Company Number: 232051J08USA

PATIENT
  Age: 18 Year
  Sex: Male

DRUGS (2)
  1. REBIF [Suspect]
     Indication: MULTIPLE SCLEROSIS
     Dosage: 44MCG, 3 IN 1 WEEKS, SUBCUTANEOUS
     Route: 058
     Dates: start: 20070323
  2. STEROIDS (CORTICOSTEROID NOS) [Suspect]
     Indication: MULTIPLE SCLEROSIS

REACTIONS (1)
  - SUICIDE ATTEMPT [None]
